FAERS Safety Report 8481685-X (Version None)
Quarter: 2012Q3

REPORT INFORMATION
  Report Type: 
  Country: None (occurrence: None)
  Receive Date: 20120702
  Receipt Date: 20120625
  Transmission Date: 20120928
  Serious: Yes (Death, Other)
  Sender: FDA-Public Use
  Company Number: US-TEVA-345603USA

PATIENT
  Age: 78 Year
  Sex: Female
  Weight: 80 kg

DRUGS (9)
  1. IBANDRONIC ACID [Concomitant]
     Route: 065
  2. PROPAFENONE HCL [Suspect]
     Route: 065
  3. DABIGATRAN ETEXILATE [Interacting]
     Route: 065
  4. DOXEPIN [Concomitant]
     Route: 065
  5. ASPIRIN [Interacting]
     Route: 065
  6. RAMIPRIL [Concomitant]
     Route: 065
  7. TIOTROPIUM BROMIDE [Concomitant]
     Route: 065
  8. ALBUTEROL SULATE [Concomitant]
     Route: 065
  9. FUROSEMIDE [Concomitant]
     Route: 065

REACTIONS (7)
  - PLEURAL HAEMORRHAGE [None]
  - COAGULOPATHY [None]
  - INTRA-ABDOMINAL HAEMORRHAGE [None]
  - GASTROINTESTINAL HAEMORRHAGE [None]
  - HYPOTENSION [None]
  - RETROPERITONEAL HAEMORRHAGE [None]
  - DRUG INTERACTION [None]
